FAERS Safety Report 10708264 (Version 8)
Quarter: 2016Q3

REPORT INFORMATION
  Report Type: Spontaneous
  Country: US (occurrence: US)
  Receive Date: 20150113
  Receipt Date: 20160831
  Transmission Date: 20161109
  Serious: Yes (Hospitalization, Other)
  Sender: FDA-Public Use
  Company Number: US-PFIZER INC-2015010837

PATIENT
  Age: 81 Year
  Sex: Female
  Weight: 61.23 kg

DRUGS (18)
  1. REVATIO [Suspect]
     Active Substance: SILDENAFIL CITRATE
     Indication: PULMONARY HYPERTENSION
     Dosage: 20 MG, 3X/DAY
     Route: 048
     Dates: start: 2004
  2. VITAMIN B12 [Concomitant]
     Active Substance: CYANOCOBALAMIN
     Indication: BLOOD HOMOCYSTEINE
     Dosage: 1000 UG/ML, MONTHLY (ONE INJECTION IN THE RIGHT ARM ONCE A MONTH)
     Dates: start: 2005
  3. ZYRTEC [Concomitant]
     Active Substance: CETIRIZINE HYDROCHLORIDE
     Dosage: UNK
  4. REVATIO [Suspect]
     Active Substance: SILDENAFIL CITRATE
     Dosage: 20 MG, 3X/DAY
     Route: 048
     Dates: start: 2005
  5. NAPRO [Concomitant]
  6. REVATIO [Suspect]
     Active Substance: SILDENAFIL CITRATE
     Indication: PULMONARY ARTERIAL HYPERTENSION
     Dosage: 20 MG, 3X/DAY
     Route: 048
     Dates: start: 20050109
  7. IRBESARTAN. [Concomitant]
     Active Substance: IRBESARTAN
     Indication: HYPERTENSION
     Dosage: 300 MG, 1X/DAY
     Route: 048
  8. COLACE [Concomitant]
     Active Substance: DOCUSATE SODIUM
     Dosage: UNK
  9. VITAMIN D3 [Concomitant]
     Active Substance: CHOLECALCIFEROL
     Indication: SUPPLEMENTATION THERAPY
     Dosage: 2000 IU, DAILY
     Route: 048
     Dates: start: 2004
  10. TYLENOL [Concomitant]
     Active Substance: ACETAMINOPHEN
     Indication: INJURY
     Dosage: 325 MG, AS NEEDED (WHEN NEEDED)
     Route: 048
     Dates: start: 2004
  11. TYLENOL [Concomitant]
     Active Substance: ACETAMINOPHEN
     Indication: FATIGUE
  12. FLU [Suspect]
     Active Substance: INFLUENZA VIRUS VACCINE
  13. FOLIC ACID. [Concomitant]
     Active Substance: FOLIC ACID
     Indication: BLOOD DISORDER
     Dosage: 1 MG, 1X/DAY
     Route: 048
  14. SENNA [Concomitant]
     Active Substance: SENNA LEAF\SENNOSIDES\SENNOSIDES A AND B
     Dosage: UNK
  15. VITAMIN B6 [Concomitant]
     Active Substance: PYRIDOXINE HYDROCHLORIDE
     Indication: SUPPLEMENTATION THERAPY
     Dosage: 50 MG, DAILY
     Route: 048
     Dates: start: 2004
  16. NAPROXEN. [Concomitant]
     Active Substance: NAPROXEN
     Dosage: UNK
  17. SYNTHROID [Concomitant]
     Active Substance: LEVOTHYROXINE SODIUM
     Indication: HYPOTHYROIDISM
     Dosage: 100 MG, 1X/DAY
     Route: 048
     Dates: start: 19970722
  18. TYLENOL [Concomitant]
     Active Substance: ACETAMINOPHEN
     Indication: PAIN

REACTIONS (7)
  - Hip fracture [Recovered/Resolved with Sequelae]
  - Blood count abnormal [Unknown]
  - Pneumonia [Recovering/Resolving]
  - Cough [Recovering/Resolving]
  - Pelvic fracture [Recovered/Resolved with Sequelae]
  - Fall [Recovered/Resolved with Sequelae]
  - Malaise [Recovering/Resolving]

NARRATIVE: CASE EVENT DATE: 20140925
